FAERS Safety Report 22059511 (Version 1)
Quarter: 2023Q1

REPORT INFORMATION
  Report Type: Spontaneous
  Country: US (occurrence: US)
  Receive Date: 20230303
  Receipt Date: 20230303
  Transmission Date: 20230417
  Serious: No
  Sender: FDA-Public Use
  Company Number: US-XERIS PHARMACEUTICALS-2022XER00390

PATIENT
  Sex: Male
  Weight: 89.796 kg

DRUGS (22)
  1. GVOKE [Suspect]
     Active Substance: GLUCAGON
     Indication: Hypoglycaemia
     Dosage: 1 MG, AS NEEDED INJECTED IN THE LOWER STOMACH AREA
     Dates: start: 20221108
  2. GVOKE [Suspect]
     Active Substance: GLUCAGON
     Dosage: UNK, ON MY LEGS AS NEEDED
     Dates: start: 20230202
  3. UNSPECIFIED INGREDIENT [Suspect]
     Active Substance: UNSPECIFIED INGREDIENT
     Indication: Hypoglycaemia
     Dosage: UP YOUR NOSE
     Route: 045
  4. MORPHINE [Concomitant]
     Active Substance: MORPHINE
  5. ROXICODONE [Concomitant]
     Active Substance: OXYCODONE HYDROCHLORIDE
  6. LYRICA [Concomitant]
     Active Substance: PREGABALIN
  7. METHOCARBAMOL [Concomitant]
     Active Substance: METHOCARBAMOL
  8. DONEPEZIL [Concomitant]
     Active Substance: DONEPEZIL
  9. CREON [Concomitant]
     Active Substance: PANCRELIPASE AMYLASE\PANCRELIPASE LIPASE\PANCRELIPASE PROTEASE
  10. UNSPECIFIED ALZHEIMER^S MEDICATIONS [Concomitant]
  11. AMITRIPTYLINE [Concomitant]
     Active Substance: AMITRIPTYLINE
  12. BUSPIRONE [Concomitant]
     Active Substance: BUSPIRONE HYDROCHLORIDE
  13. PROZAC [Concomitant]
     Active Substance: FLUOXETINE HYDROCHLORIDE
  14. FINASTERIDE [Concomitant]
     Active Substance: FINASTERIDE
  15. TAMSULOSIN [Concomitant]
     Active Substance: TAMSULOSIN
  16. PROTONIX [Concomitant]
     Active Substance: PANTOPRAZOLE SODIUM
  17. VITAMINS [Concomitant]
     Active Substance: VITAMINS
  18. POTASSIUM [Concomitant]
     Active Substance: POTASSIUM
  19. CALCIUM MAGNESIUM ZINC [CALCIUM;MAGNESIUM;ZINC] [Concomitant]
  20. VITAMIN D3 [Concomitant]
     Active Substance: CHOLECALCIFEROL
  21. MELATONIN [Concomitant]
     Active Substance: MELATONIN
  22. SEROQUEL [Concomitant]
     Active Substance: QUETIAPINE FUMARATE

REACTIONS (5)
  - Product packaging quantity issue [Unknown]
  - Device defective [Unknown]
  - Device delivery system issue [Unknown]
  - Product administration error [Unknown]
  - Injection site pain [Recovered/Resolved]

NARRATIVE: CASE EVENT DATE: 20220101
